FAERS Safety Report 9768490 (Version 3)
Quarter: 2014Q1

REPORT INFORMATION
  Report Type: Not Available
  Country: None (occurrence: US)
  Receive Date: 20131217
  Receipt Date: 20140114
  Transmission Date: 20141002
  Serious: Yes (Hospitalization)
  Sender: FDA-Public Use
  Company Number: US-ONYX-2013-2035

PATIENT
  Age: 82 Year
  Sex: Female

DRUGS (4)
  1. KYPROLIS [Suspect]
     Indication: PLASMA CELL MYELOMA
     Route: 042
     Dates: start: 20131104, end: 201312
  2. KYPROLIS [Suspect]
     Route: 042
     Dates: start: 20131209
  3. KYPROLIS [Suspect]
     Route: 042
     Dates: start: 20140106
  4. TEMAZEPAM [Concomitant]
     Indication: INSOMNIA

REACTIONS (6)
  - Dyspnoea [Not Recovered/Not Resolved]
  - Arrhythmia [Not Recovered/Not Resolved]
  - Chest discomfort [Recovered/Resolved]
  - Headache [Not Recovered/Not Resolved]
  - Blood potassium decreased [Recovered/Resolved]
  - Back pain [Not Recovered/Not Resolved]
